FAERS Safety Report 8943667 (Version 2)
Quarter: 2013Q1

REPORT INFORMATION
  Report Type: Spontaneous
  Country: US (occurrence: US)
  Receive Date: 20121204
  Receipt Date: 20130118
  Transmission Date: 20140127
  Serious: Yes (Other)
  Sender: FDA-Public Use
  Company Number: PHEH2012US023469

PATIENT
  Sex: Female

DRUGS (1)
  1. DIOVAN HCT [Suspect]
     Dosage: 1 DF (320 MG VALS/ 25 MG HCT), PER DAY

REACTIONS (5)
  - Diabetes mellitus [Unknown]
  - Arthritis [Unknown]
  - Hypertension [Unknown]
  - Limb injury [Unknown]
  - Wrong technique in drug usage process [Unknown]
